FAERS Safety Report 23273638 (Version 1)
Quarter: 2023Q4

REPORT INFORMATION
  Report Type: Report from Study
  Country: NL (occurrence: NL)
  Receive Date: 20231207
  Receipt Date: 20231207
  Transmission Date: 20240109
  Serious: Yes (Death, Other)
  Sender: FDA-Public Use
  Company Number: NL-VER-202300062

PATIENT
  Age: 76 Year
  Sex: Male

DRUGS (9)
  1. TRIPTORELIN PAMOATE [Suspect]
     Active Substance: TRIPTORELIN PAMOATE
     Indication: Prostate cancer
     Route: 030
     Dates: start: 20230622
  2. TRIPTORELIN PAMOATE [Suspect]
     Active Substance: TRIPTORELIN PAMOATE
     Indication: Prostate cancer
     Dosage: THE BATCH NUMBER WAS W19638 AND A53572 AND EXPIRY DATE OCT-2024 AND MAR-2025 RESPECTIVELY.
     Route: 030
     Dates: start: 20221222
  3. CYPROTERONACETAAT [Concomitant]
     Indication: Product used for unknown indication
     Dosage: ??50 X 1*DD (1 D)
     Route: 065
  4. ABIRATERONE [Concomitant]
     Active Substance: ABIRATERONE
     Indication: Product used for unknown indication
     Dosage: 500 MG X 1DD2TBL (500 MG,1 D)
     Route: 065
  5. TAMSULOSIN HYDROCHLORIDE [Concomitant]
     Active Substance: TAMSULOSIN HYDROCHLORIDE
     Indication: Product used for unknown indication
     Dosage: 0.4 MG,1 D
     Route: 065
  6. CALC CHEW [Concomitant]
     Indication: Product used for unknown indication
     Dosage: 500 MG/400IE X 1*DD (500 MG,1 D)
     Route: 065
  7. METOPROLOL SUCCINATE [Concomitant]
     Active Substance: METOPROLOL SUCCINATE
     Indication: Product used for unknown indication
     Dosage: 200 MG,1 D
     Route: 065
  8. LISINOPRIL [Concomitant]
     Active Substance: LISINOPRIL
     Indication: Product used for unknown indication
     Dosage: 20 MG,1 D
     Route: 065
  9. ACETYLSAL [Concomitant]
     Indication: Product used for unknown indication
     Dosage: 80 MG,1 D
     Route: 065

REACTIONS (4)
  - Death [Fatal]
  - Dysuria [Unknown]
  - Hot flush [Recovering/Resolving]
  - Mood swings [Unknown]
